FAERS Safety Report 13426489 (Version 2)
Quarter: 2017Q2

REPORT INFORMATION
  Report Type: Spontaneous
  Country: JP (occurrence: JP)
  Receive Date: 20170411
  Receipt Date: 20170419
  Transmission Date: 20170830
  Serious: Yes (Death, Other)
  Sender: FDA-Public Use
  Company Number: PHJP2017JP012118

PATIENT
  Age: 63 Year
  Sex: Male

DRUGS (1)
  1. VOTRIENT [Suspect]
     Active Substance: PAZOPANIB HYDROCHLORIDE
     Indication: CLEAR CELL RENAL CELL CARCINOMA
     Dosage: 400 MG TO 600 MG, QD
     Route: 048

REACTIONS (4)
  - Clear cell renal cell carcinoma [Fatal]
  - Malignant neoplasm progression [Fatal]
  - Paraplegia [Unknown]
  - Muscular weakness [Unknown]
